FAERS Safety Report 7289423-3 (Version None)
Quarter: 2011Q1

REPORT INFORMATION
  Report Type: 
  Country: None (occurrence: None)
  Receive Date: 20110211
  Receipt Date: 20110107
  Transmission Date: 20110831
  Serious: Yes (Death, Other)
  Sender: FDA-Public Use
  Company Number: US-BAYER-200923798NA

PATIENT
  Sex: Male
  Weight: 69.8 kg

DRUGS (38)
  1. PROHANCE [Suspect]
     Indication: NUCLEAR MAGNETIC RESONANCE IMAGING
  2. PERCOCET [Concomitant]
  3. ASPIRIN [Concomitant]
  4. VANCOMYCIN [Concomitant]
  5. AMIODARONE [Concomitant]
  6. RENAGEL [Concomitant]
  7. MICARDIS [Concomitant]
  8. MAGNEVIST [Suspect]
     Indication: NUCLEAR MAGNETIC RESONANCE IMAGING
     Route: 042
     Dates: start: 20060726, end: 20060726
  9. UNSPECIFIED GADOLINIUM BASED CONTRAST AGENT [Suspect]
     Indication: ANGIOGRAM
     Dates: start: 20001001, end: 20001001
  10. UNSPECIFIED GADOLINIUM BASED CONTRAST AGENT [Suspect]
     Indication: NUCLEAR MAGNETIC RESONANCE IMAGING
     Dosage: UNK
     Dates: start: 20000205, end: 20000205
  11. UNSPECIFIED GADOLINIUM BASED CONTRAST AGENT [Suspect]
     Dosage: UNK
     Dates: start: 20011217, end: 20011217
  12. PLAQUENIL [Concomitant]
  13. FERRLECIT [Concomitant]
  14. COREG [Concomitant]
  15. DIGOXIN [Concomitant]
  16. PREDNISONE [Concomitant]
  17. IMURAN [Concomitant]
  18. DARBEPOETIN ALFA [Concomitant]
  19. LANTHANUM CARBONATE [Concomitant]
  20. NORVASC [Concomitant]
  21. ZEMPLAR [Concomitant]
  22. FLORINEF [Concomitant]
  23. MAGNEVIST [Suspect]
     Route: 042
     Dates: start: 20060809, end: 20060809
  24. MULTIHANCE [Suspect]
     Indication: NUCLEAR MAGNETIC RESONANCE IMAGING
  25. RENAPHRO [Concomitant]
  26. EPOGEN [Concomitant]
  27. TUMS [CALCIUM CARBONATE] [Concomitant]
  28. CORTISONE ACETATE [Concomitant]
  29. LOPRESSOR [Concomitant]
  30. MINOXIDIL [Concomitant]
  31. CLONIDINE [Concomitant]
  32. PHOSLO [Concomitant]
  33. HECTOROL [Concomitant]
  34. UNSPECIFIED GADOLINIUM BASED CONTRAST AGENT [Suspect]
     Dosage: UNK
     Dates: start: 20000505, end: 20000505
  35. UNSPECIFIED GADOLINIUM BASED CONTRAST AGENT [Suspect]
     Dosage: UNK
     Dates: start: 20060714, end: 20060714
  36. OMNISCAN [Suspect]
     Indication: NUCLEAR MAGNETIC RESONANCE IMAGING
  37. OPTIMARK [Suspect]
     Indication: NUCLEAR MAGNETIC RESONANCE IMAGING
  38. PROCARDIA [Concomitant]

REACTIONS (18)
  - NEPHROGENIC SYSTEMIC FIBROSIS [None]
  - SKIN INDURATION [None]
  - MUSCULOSKELETAL STIFFNESS [None]
  - SKIN HYPERPIGMENTATION [None]
  - MUSCLE CONTRACTIONS INVOLUNTARY [None]
  - PAIN [None]
  - JOINT RANGE OF MOTION DECREASED [None]
  - GENERAL PHYSICAL HEALTH DETERIORATION [None]
  - MUSCULAR WEAKNESS [None]
  - SKIN FIBROSIS [None]
  - SKIN HYPERTROPHY [None]
  - JOINT STIFFNESS [None]
  - ARTHRALGIA [None]
  - FIBROSIS [None]
  - MOBILITY DECREASED [None]
  - GAIT DISTURBANCE [None]
  - OEDEMA PERIPHERAL [None]
  - SKIN DISCOLOURATION [None]
